FAERS Safety Report 9411171 (Version 1)
Quarter: 2013Q3

REPORT INFORMATION
  Report Type: Spontaneous
  Country: US (occurrence: US)
  Receive Date: 20130721
  Receipt Date: 20130721
  Transmission Date: 20140515
  Serious: No
  Sender: FDA-Public Use
  Company Number: US-B.I. PHARMACEUTICALS,INC./RIDGEFIELD-2013-BI-20735BP

PATIENT
  Sex: Female
  Weight: 108 kg

DRUGS (9)
  1. SPIRIVA [Suspect]
     Indication: CHRONIC OBSTRUCTIVE PULMONARY DISEASE
     Dosage: 18 MCG
     Route: 055
     Dates: start: 2009
  2. QVAR [Concomitant]
     Indication: CHRONIC OBSTRUCTIVE PULMONARY DISEASE
     Dosage: 2 PUF
     Route: 055
     Dates: start: 2012
  3. VICTOZA [Concomitant]
     Indication: DIABETES MELLITUS
     Dosage: 0.6 MG
     Route: 048
     Dates: start: 2011
  4. DOXEPIN [Concomitant]
     Indication: NEUROPATHY PERIPHERAL
     Dosage: 450 MG
     Route: 048
     Dates: start: 2012
  5. ADVAIR [Concomitant]
     Indication: CHRONIC OBSTRUCTIVE PULMONARY DISEASE
     Dosage: 2 PUF
     Route: 055
     Dates: start: 2008
  6. OMEGA-3 FISH OIL [Concomitant]
     Indication: SUPPLEMENTATION THERAPY
     Dosage: 2 ANZ
     Route: 048
     Dates: start: 2005
  7. HYDROCODONE [Concomitant]
     Indication: ARTHRITIS
     Dosage: STRENGTH: 10 MG / 650 MG; DAILY DOSE: 30 MG / 1950 MG
     Route: 048
     Dates: start: 2011
  8. ZOFINEX [Concomitant]
     Indication: CHRONIC OBSTRUCTIVE PULMONARY DISEASE
     Dosage: 12 PUF
     Route: 055
     Dates: start: 2008
  9. TRAZODONE [Concomitant]
     Indication: BIPOLAR DISORDER
     Dosage: 300 MG
     Route: 048
     Dates: start: 2000

REACTIONS (1)
  - Diabetes mellitus [Not Recovered/Not Resolved]
